FAERS Safety Report 11448333 (Version 1)
Quarter: 2015Q3

REPORT INFORMATION
  Report Type: Spontaneous
  Country: US (occurrence: US)
  Receive Date: 20150831
  Receipt Date: 20150831
  Transmission Date: 20151125
  Serious: No
  Sender: FDA-Public Use
  Company Number: US-ELI_LILLY_AND_COMPANY-US200905003206

PATIENT
  Sex: Female

DRUGS (4)
  1. CYMBALTA [Suspect]
     Active Substance: DULOXETINE HYDROCHLORIDE
     Dosage: 90 MG, DAILY (1/D)
  2. CYMBALTA [Suspect]
     Active Substance: DULOXETINE HYDROCHLORIDE
     Dosage: 60 MG, DAILY (1/D)
  3. CYMBALTA [Suspect]
     Active Substance: DULOXETINE HYDROCHLORIDE
     Indication: FIBROMYALGIA
     Dosage: 30 MG, DAILY (1/D)
     Dates: start: 20080324
  4. CYMBALTA [Suspect]
     Active Substance: DULOXETINE HYDROCHLORIDE
     Dosage: 120 MG, DAILY (1/D)

REACTIONS (17)
  - Fall [Unknown]
  - Vision blurred [Unknown]
  - Hypoaesthesia [Unknown]
  - Palpitations [Unknown]
  - Drug ineffective [Not Recovered/Not Resolved]
  - Affect lability [Unknown]
  - Chills [Unknown]
  - Chest pain [Unknown]
  - Feeling abnormal [Unknown]
  - Thinking abnormal [Unknown]
  - Panic attack [Unknown]
  - Vomiting [Unknown]
  - Insomnia [Unknown]
  - Blood pressure abnormal [Unknown]
  - Weight decreased [Unknown]
  - Hyperhidrosis [Not Recovered/Not Resolved]
  - Abnormal dreams [Unknown]

NARRATIVE: CASE EVENT DATE: 2008
